FAERS Safety Report 11331120 (Version 1)
Quarter: 2015Q3

REPORT INFORMATION
  Report Type: Spontaneous
  Country: US (occurrence: None)
  Receive Date: 20150731
  Receipt Date: 20150731
  Transmission Date: 20151125
  Serious: Yes (Hospitalization)
  Sender: FDA-Public Use
  Company Number: None

PATIENT
  Age: 66 Year
  Sex: Male
  Weight: 89.5 kg

DRUGS (1)
  1. RIBAVIRIN. [Suspect]
     Active Substance: RIBAVIRIN
     Indication: HEPATITIS C
     Route: 048
     Dates: start: 20150618

REACTIONS (7)
  - Fall [None]
  - Insomnia [None]
  - Dizziness [None]
  - Affect lability [None]
  - Mental status changes [None]
  - Gait disturbance [None]
  - Disorganised speech [None]

NARRATIVE: CASE EVENT DATE: 20150725
